FAERS Safety Report 20217217 (Version 1)
Quarter: 2021Q4

REPORT INFORMATION
  Report Type: Spontaneous
  Country: US (occurrence: None)
  Receive Date: 20211221
  Receipt Date: 20211221
  Transmission Date: 20220303
  Serious: Yes (Disabling)
  Sender: FDA-Public Use
  Company Number: None

PATIENT
  Age: 36 Year
  Sex: Female

DRUGS (1)
  1. PARAGARD T 380A [Suspect]
     Active Substance: COPPER
     Dates: start: 20190228, end: 20210128

REACTIONS (27)
  - Fungal infection [None]
  - Pruritus [None]
  - Dyspnoea [None]
  - Palpitations [None]
  - Hot flush [None]
  - Arthralgia [None]
  - Peripheral swelling [None]
  - Peripheral swelling [None]
  - Depression [None]
  - Feeling abnormal [None]
  - Amnesia [None]
  - Loss of consciousness [None]
  - Depressed mood [None]
  - Vertigo [None]
  - Paraesthesia [None]
  - Dry eye [None]
  - Acne [None]
  - Neck pain [None]
  - Amenorrhoea [None]
  - Skin hyperpigmentation [None]
  - Capillary fragility [None]
  - Fatigue [None]
  - Insomnia [None]
  - Dry skin [None]
  - Skin fissures [None]
  - Abdominal distension [None]
  - Inflammation [None]

NARRATIVE: CASE EVENT DATE: 20190228
